FAERS Safety Report 8515931-0 (Version None)
Quarter: 2012Q3

REPORT INFORMATION
  Report Type: 
  Country: None (occurrence: None)
  Receive Date: 20120705
  Receipt Date: 20111220
  Transmission Date: 20120928
  Serious: Yes (Hospitalization)
  Sender: FDA-Public Use
  Company Number: 2011SP059132

PATIENT
  Age: 45 Year
  Sex: Male

DRUGS (2)
  1. REBETOL [Suspect]
     Indication: VIRAL HEPATITIS CARRIER
     Dosage: 800 MG;QD;PO
     Route: 048
     Dates: start: 20110105, end: 20110307
  2. VIRAFERON [Suspect]
     Indication: VIRAL HEPATITIS CARRIER
     Dosage: SC
     Route: 058
     Dates: start: 20110105, end: 20110307

REACTIONS (3)
  - VISUAL IMPAIRMENT [None]
  - SPEECH DISORDER [None]
  - DIPLOPIA [None]
